FAERS Safety Report 25450941 (Version 1)
Quarter: 2025Q2

REPORT INFORMATION
  Report Type: Spontaneous
  Country: US (occurrence: None)
  Receive Date: 20250618
  Receipt Date: 20250618
  Transmission Date: 20250716
  Serious: Yes (Hospitalization)
  Sender: FDA-CTU
  Company Number: None

PATIENT
  Sex: Female

DRUGS (9)
  1. TEZSPIRE [Suspect]
     Active Substance: TEZEPELUMAB-EKKO
     Indication: Asthma
     Dosage: OTHER FREQUENCY : Q 4WKS;?
     Route: 058
     Dates: start: 20240207
  2. ALLEGRA [Concomitant]
     Active Substance: FEXOFENADINE HYDROCHLORIDE
  3. ALPRAZOLAM [Concomitant]
     Active Substance: ALPRAZOLAM
  4. AZELASTINE [Concomitant]
     Active Substance: AZELASTINE
  5. FLONASE [Concomitant]
     Active Substance: FLUTICASONE PROPIONATE
  6. MIRALAX [Concomitant]
     Active Substance: POLYETHYLENE GLYCOL 3350
  7. QULIPTA [Concomitant]
     Active Substance: ATOGEPANT
  8. XEOMIN [Concomitant]
     Active Substance: INCOBOTULINUMTOXINA
  9. XYZAL [Concomitant]
     Active Substance: LEVOCETIRIZINE DIHYDROCHLORIDE

REACTIONS (1)
  - Hip fracture [None]
